FAERS Safety Report 5217123-X (Version None)
Quarter: 2007Q1

REPORT INFORMATION
  Report Type: 
  Country: None (occurrence: None)
  Receive Date: 20070124
  Receipt Date: 20070122
  Transmission Date: 20070707
  Serious: Yes (Hospitalization)
  Sender: FDA-Public Use
  Company Number: US-GLAXOSMITHKLINE-A0636578A

PATIENT
  Age: 22 Year
  Sex: Female

DRUGS (3)
  1. LAMICTAL [Suspect]
     Dosage: 100MG IN THE MORNING
     Route: 048
  2. DILANTIN [Suspect]
     Route: 048
  3. DEPAKOTE [Suspect]
     Dosage: 2000MG PER DAY
     Route: 048
     Dates: start: 20060801

REACTIONS (5)
  - ACTIVITIES OF DAILY LIVING IMPAIRED [None]
  - CONVULSION [None]
  - DRUG INEFFECTIVE [None]
  - RASH [None]
  - URTICARIA [None]
